FAERS Safety Report 25520442 (Version 1)
Quarter: 2025Q3

REPORT INFORMATION
  Report Type: Spontaneous
  Country: GB (occurrence: GB)
  Receive Date: 20250704
  Receipt Date: 20250704
  Transmission Date: 20251020
  Serious: Yes (Hospitalization, Other)
  Sender: ELI LILLY AND COMPANY
  Company Number: None

PATIENT
  Age: 38 Year
  Sex: Female
  Weight: 96 kg

DRUGS (2)
  1. MOUNJARO [Suspect]
     Active Substance: TIRZEPATIDE
     Indication: Weight control
     Route: 065
  2. MOUNJARO [Suspect]
     Active Substance: TIRZEPATIDE
     Route: 065
     Dates: start: 20240701, end: 20241001

REACTIONS (4)
  - Gastroenteritis [Recovered/Resolved with Sequelae]
  - Cholelithiasis [Unknown]
  - Pancreatitis [Recovered/Resolved with Sequelae]
  - Impaired gastric emptying [Unknown]

NARRATIVE: CASE EVENT DATE: 20240701
